FAERS Safety Report 9684726 (Version 1)
Quarter: 2013Q4

REPORT INFORMATION
  Report Type: Spontaneous
  Country: US (occurrence: US)
  Receive Date: 20131112
  Receipt Date: 20131112
  Transmission Date: 20140711
  Serious: Yes (Other)
  Sender: FDA-Public Use
  Company Number: ALCN2013US005614

PATIENT
  Age: 44 Year
  Sex: Female
  Weight: 73.92 kg

DRUGS (1)
  1. SIMBRINZA [Suspect]
     Indication: OCULAR HYPERTENSION
     Dosage: 1 DF, BID
     Route: 047
     Dates: start: 20130815, end: 20130903

REACTIONS (5)
  - Fall [Recovered/Resolved]
  - Balance disorder [Recovered/Resolved]
  - Dizziness [Recovered/Resolved]
  - Nausea [Recovered/Resolved]
  - Vomiting [Recovered/Resolved]
